FAERS Safety Report 4394295-0 (Version None)
Quarter: 2004Q3

REPORT INFORMATION
  Report Type: 
  Country: None (occurrence: None)
  Receive Date: 20040707
  Receipt Date: 20040707
  Transmission Date: 20050211
  Serious: Yes (Hospitalization)
  Sender: FDA-Public Use
  Company Number: None

PATIENT
  Age: 77 Year
  Sex: Male
  Weight: 74.4 kg

DRUGS (2)
  1. CAPECITABINE 500 MG ROCHE [Suspect]
     Indication: RECTAL CANCER
     Dosage: 2500 MG BID ORAL
     Route: 048
     Dates: start: 20040614, end: 20040627
  2. SIMVASTATIN [Concomitant]

REACTIONS (8)
  - BENIGN PROSTATIC HYPERPLASIA [None]
  - BURNING SENSATION [None]
  - INDURATION [None]
  - OEDEMA [None]
  - PERIANAL ERYTHEMA [None]
  - SECRETION DISCHARGE [None]
  - TENDERNESS [None]
  - URINARY RETENTION [None]
